FAERS Safety Report 19192081 (Version 2)
Quarter: 2021Q2

REPORT INFORMATION
  Report Type: Spontaneous
  Country: US (occurrence: US)
  Receive Date: 20210429
  Receipt Date: 20210602
  Transmission Date: 20210717
  Serious: Yes (Disabling, Other)
  Sender: FDA-Public Use
  Company Number: US-AMGEN-USASP2021060111

PATIENT
  Age: 44 Year
  Sex: Female
  Weight: 76.7 kg

DRUGS (2)
  1. PROLIA [Suspect]
     Active Substance: DENOSUMAB
     Indication: OSTEOPOROSIS
     Dosage: 60 MILLIGRAM, Q6MO
     Route: 058
     Dates: start: 20160831
  2. HYDROCORTISON [HYDROCORTISONE] [Concomitant]
     Dosage: UNK

REACTIONS (5)
  - Adrenal insufficiency [Unknown]
  - Disability [Unknown]
  - Vitamin D deficiency [Unknown]
  - Cerebral palsy [Unknown]
  - COVID-19 [Not Recovered/Not Resolved]

NARRATIVE: CASE EVENT DATE: 20210417
